FAERS Safety Report 17306536 (Version 1)
Quarter: 2020Q1

REPORT INFORMATION
  Report Type: Spontaneous
  Country: ES (occurrence: ES)
  Receive Date: 20200123
  Receipt Date: 20200123
  Transmission Date: 20200409
  Serious: Yes (Hospitalization)
  Sender: FDA-Public Use
  Company Number: ES-TEVA-2020-ES-1171394

PATIENT
  Age: 66 Year
  Sex: Female

DRUGS (3)
  1. DOXORUBICINA (202A) [Suspect]
     Active Substance: DOXORUBICIN HYDROCHLORIDE
     Dates: start: 20190430, end: 20190529
  2. VINCRISTINA (809A) [Suspect]
     Active Substance: VINCRISTINE SULFATE
     Dates: start: 20190430, end: 20190529
  3. TRUXIMA [Suspect]
     Active Substance: RITUXIMAB-ABBS
     Dates: start: 20190430, end: 20190529

REACTIONS (2)
  - Constipation [Recovered/Resolved]
  - Diarrhoea [Recovered/Resolved]

NARRATIVE: CASE EVENT DATE: 20190503
